FAERS Safety Report 4608797-2 (Version None)
Quarter: 2005Q1

REPORT INFORMATION
  Report Type: 
  Country: None (occurrence: None)
  Receive Date: 20050309
  Receipt Date: 20050223
  Transmission Date: 20050727
  Serious: Yes (Hospitalization)
  Sender: FDA-Public Use
  Company Number: 000#8#2005-00176

PATIENT
  Age: 22 Year
  Sex: Male

DRUGS (3)
  1. ISOSORBIDE MONONITRATE [Suspect]
     Dosage: ORAL
     Route: 048
  2. VERAPAMIL [Suspect]
     Dosage: ORAL
     Route: 048
  3. DILTIAZEM [Suspect]
     Dosage: ORAL
     Route: 048

REACTIONS (11)
  - ACUTE RESPIRATORY DISTRESS SYNDROME [None]
  - BAROTRAUMA [None]
  - EMPHYSEMA [None]
  - ILEUS PARALYTIC [None]
  - MULTIPLE DRUG OVERDOSE [None]
  - PNEUMOMEDIASTINUM [None]
  - PNEUMOPERITONEUM [None]
  - PNEUMOTHORAX [None]
  - PROCEDURAL COMPLICATION [None]
  - SHOCK [None]
  - SUICIDE ATTEMPT [None]
